FAERS Safety Report 5315056-1 (Version None)
Quarter: 2007Q2

REPORT INFORMATION
  Report Type: 
  Country: None (occurrence: None)
  Receive Date: 20070502
  Receipt Date: 20070420
  Transmission Date: 20071010
  Serious: Yes (Hospitalization)
  Sender: FDA-Public Use
  Company Number: HQWYE740423APR07

PATIENT
  Sex: Male

DRUGS (3)
  1. ENBREL [Suspect]
     Indication: RHEUMATOID ARTHRITIS
     Route: 058
     Dates: start: 20070322, end: 20070409
  2. METALCAPTASE [Concomitant]
     Route: 048
  3. ISONIAZID [Concomitant]
     Dosage: UNSPECIFIED
     Route: 048

REACTIONS (1)
  - NEPHROTIC SYNDROME [None]
